FAERS Safety Report 10643264 (Version 1)
Quarter: 2014Q4

REPORT INFORMATION
  Report Type: Spontaneous
  Country: US (occurrence: None)
  Receive Date: 20141128
  Receipt Date: 20141128
  Transmission Date: 20150529
  Serious: Yes (Other)
  Sender: FDA-Public Use
  Company Number: 1331106

PATIENT
  Sex: Female

DRUGS (1)
  1. TAMIFLU [Suspect]
     Active Substance: OSELTAMIVIR PHOSPHATE
     Indication: INFLUENZA
     Dosage: (75 MG, 1 IN 1 D), ORAL
     Route: 048
     Dates: start: 20140106

REACTIONS (3)
  - Malaise [None]
  - Vomiting [None]
  - Pyrexia [None]
